FAERS Safety Report 16086796 (Version 3)
Quarter: 2019Q2

REPORT INFORMATION
  Report Type: Spontaneous
  Country: BR (occurrence: BR)
  Receive Date: 20190318
  Receipt Date: 20190613
  Transmission Date: 20190711
  Serious: Yes (Life-Threatening, Other)
  Sender: FDA-Public Use
  Company Number: PHHY2019BR059781

PATIENT
  Sex: Male
  Weight: 70 kg

DRUGS (7)
  1. LEPONEX [Suspect]
     Active Substance: CLOZAPINE
     Dosage: 1 DF, UNK
     Route: 065
     Dates: end: 20190312
  2. LEPONEX [Suspect]
     Active Substance: CLOZAPINE
     Dosage: 0.5 DF, UNK
     Route: 065
     Dates: start: 2014
  3. ARADOIS [Concomitant]
     Active Substance: LOSARTAN POTASSIUM
     Indication: HYPERTENSION
     Dosage: 1 DF, QD
     Route: 048
  4. STALEVO [Suspect]
     Active Substance: CARBIDOPA\ENTACAPONE\LEVODOPA
     Indication: PARKINSON^S DISEASE
     Dosage: 1 DF, Q4H
     Route: 048
  5. STALEVO [Suspect]
     Active Substance: CARBIDOPA\ENTACAPONE\LEVODOPA
     Dosage: 150 MG, QID
     Route: 048
     Dates: end: 20190313
  6. LEPONEX [Suspect]
     Active Substance: CLOZAPINE
     Indication: PSYCHOTIC DISORDER
     Dosage: 25 MG, QHS (AT BEDTIME)
     Route: 065
     Dates: start: 2006
  7. MANTIDAN [Suspect]
     Active Substance: AMANTADINE HYDROCHLORIDE
     Indication: PRODUCT USED FOR UNKNOWN INDICATION
     Route: 065

REACTIONS (19)
  - Feeling abnormal [Recovered/Resolved]
  - Drug dependence [Not Recovered/Not Resolved]
  - Movement disorder [Recovered/Resolved]
  - Prostate infection [Recovered/Resolved]
  - Agitation [Recovering/Resolving]
  - Asphyxia [Recovered/Resolved]
  - Fall [Recovered/Resolved]
  - Hallucination [Recovered/Resolved]
  - Depression [Recovering/Resolving]
  - Dementia [Unknown]
  - Sleep disorder [Recovered/Resolved]
  - Arterial catheterisation abnormal [Recovering/Resolving]
  - Cardiac disorder [Recovering/Resolving]
  - Diabetes mellitus [Recovering/Resolving]
  - Gait disturbance [Recovered/Resolved]
  - Emotional disorder [Not Recovered/Not Resolved]
  - Agitation [Recovered/Resolved]
  - Urinary tract infection [Recovered/Resolved]
  - Pyrexia [Recovered/Resolved]

NARRATIVE: CASE EVENT DATE: 2008
